FAERS Safety Report 4337972-X (Version None)
Quarter: 2004Q2

REPORT INFORMATION
  Report Type: 
  Country: None (occurrence: None)
  Receive Date: 20040407
  Receipt Date: 20040323
  Transmission Date: 20050107
  Serious: Yes (Hospitalization)
  Sender: FDA-Public Use
  Company Number: FR_040303777

PATIENT
  Age: 56 Year
  Sex: Male

DRUGS (3)
  1. CELANCE (PERGOLIDE MESYLATE) [Suspect]
     Indication: PARKINSON'S DISEASE
     Dates: end: 20040218
  2. SIMEMET [Concomitant]
  3. COMTAN [Concomitant]

REACTIONS (2)
  - DELIRIUM [None]
  - PARANOIA [None]
